FAERS Safety Report 4277299-8 (Version None)
Quarter: 2004Q1

REPORT INFORMATION
  Report Type: 
  Country: None (occurrence: None)
  Receive Date: 20040121
  Receipt Date: 20040121
  Transmission Date: 20041129
  Serious: Yes (Life-Threatening, Hospitalization, Disabling)
  Sender: FDA-Public Use
  Company Number: None

PATIENT
  Age: 76 Year
  Sex: Female
  Weight: 50.8029 kg

DRUGS (6)
  1. PROZAC [Suspect]
     Indication: ANXIETY
     Dosage: 1 X DAY BY MOUTH
     Route: 048
     Dates: start: 19960130, end: 20030617
  2. PROZAC [Suspect]
     Indication: DEPRESSION
     Dosage: 1 X DAY BY MOUTH
     Route: 048
     Dates: start: 19960130, end: 20030617
  3. PROZAC [Suspect]
     Indication: ANXIETY
     Dates: start: 20030630, end: 20030921
  4. PROZAC [Suspect]
     Indication: DEPRESSION
     Dates: start: 20030630, end: 20030921
  5. LEVOXYL [Concomitant]
  6. CARAFATE [Concomitant]

REACTIONS (23)
  - ANXIETY [None]
  - BACK PAIN [None]
  - DEAFNESS [None]
  - DIPLOPIA [None]
  - DIZZINESS [None]
  - DRUG TOXICITY [None]
  - DRY MOUTH [None]
  - DYSPEPSIA [None]
  - FLATULENCE [None]
  - HOT FLUSH [None]
  - HYPERHIDROSIS [None]
  - MELANODERMIA [None]
  - NAUSEA [None]
  - NERVOUSNESS [None]
  - PARKINSONISM [None]
  - POLLAKIURIA [None]
  - RHINITIS [None]
  - SEROTONIN SYNDROME [None]
  - SINUSITIS [None]
  - SOMNOLENCE [None]
  - TREMOR [None]
  - TUNNEL VISION [None]
  - YAWNING [None]
